FAERS Safety Report 7818502-4 (Version None)
Quarter: 2011Q4

REPORT INFORMATION
  Report Type: 
  Country: None (occurrence: None)
  Receive Date: 20111017
  Receipt Date: 20110923
  Transmission Date: 20120403
  Serious: Yes (Other)
  Sender: FDA-Public Use
  Company Number: GB-ROCHE-1000481

PATIENT
  Age: 25 Year
  Weight: 45 kg

DRUGS (18)
  1. ACTEMRA [Suspect]
     Indication: PSORIATIC ARTHROPATHY
     Route: 042
     Dates: start: 20110622, end: 20110818
  2. SENNA [Concomitant]
  3. FOLIC ACID [Concomitant]
  4. DIAZEPAM [Concomitant]
  5. DOVOBET [Concomitant]
  6. GABAPENTIN [Concomitant]
  7. DIPROBASE [Concomitant]
  8. FERROUS SULFATE TAB [Concomitant]
  9. OXYCODONE HCL [Concomitant]
  10. TPN [Concomitant]
  11. LACTULOSE [Concomitant]
  12. MYCOPHENOLATE MOFETIL [Concomitant]
  13. ADCAL [Concomitant]
  14. DOVOBET [Concomitant]
  15. GLYCERIN [Concomitant]
  16. OXYCONTIN [Concomitant]
  17. FENTANYL [Concomitant]
  18. SODIUM FLUORIDE [Concomitant]

REACTIONS (1)
  - ARTHRALGIA [None]
